FAERS Safety Report 7700913-9 (Version None)
Quarter: 2011Q3

REPORT INFORMATION
  Report Type: 
  Country: None (occurrence: None)
  Receive Date: 20110822
  Receipt Date: 20110817
  Transmission Date: 20111222
  Serious: Yes (Life-Threatening)
  Sender: FDA-Public Use
  Company Number: PHHY2011FR73683

PATIENT
  Sex: Female

DRUGS (1)
  1. METHERGINE [Suspect]
     Route: 042

REACTIONS (4)
  - APPARENT DEATH [None]
  - SHOCK [None]
  - BLOOD PRESSURE DECREASED [None]
  - CIRCULATORY COLLAPSE [None]
